FAERS Safety Report 22788045 (Version 2)
Quarter: 2024Q1

REPORT INFORMATION
  Report Type: Spontaneous
  Country: US (occurrence: None)
  Receive Date: 20230804
  Receipt Date: 20240321
  Transmission Date: 20240410
  Serious: Yes (Death, Hospitalization, Other)
  Sender: FDA-Public Use
  Company Number: 2023A174832

PATIENT
  Age: 24531 Day
  Sex: Male
  Weight: 167.6 kg

DRUGS (18)
  1. PULMICORT TURBUHALER [Suspect]
     Active Substance: BUDESONIDE
     Route: 055
     Dates: start: 20201010
  2. TOPROL XL [Suspect]
     Active Substance: METOPROLOL SUCCINATE
     Indication: Essential hypertension
     Route: 048
     Dates: start: 20191023
  3. ASCIMINIB [Suspect]
     Active Substance: ASCIMINIB
     Indication: Chronic myeloid leukaemia
     Route: 048
     Dates: start: 20230124, end: 20230521
  4. ASCIMINIB [Suspect]
     Active Substance: ASCIMINIB
     Indication: Chronic myeloid leukaemia
     Route: 048
     Dates: start: 20230523
  5. BUMEX [Suspect]
     Active Substance: BUMETANIDE
     Indication: Cardiac failure congestive
     Dates: start: 20230317, end: 20230522
  6. HYDRODIURIL [Suspect]
     Active Substance: HYDROCHLOROTHIAZIDE
     Indication: Pulmonary hypertension
     Route: 048
     Dates: start: 20180807
  7. HYDRODIURIL [Suspect]
     Active Substance: HYDROCHLOROTHIAZIDE
     Indication: Cardiac failure congestive
     Route: 048
     Dates: start: 20180807
  8. ASPIRIN [Concomitant]
     Active Substance: ASPIRIN
     Dates: start: 2005
  9. LUTEIN [Concomitant]
     Active Substance: LUTEIN
     Dates: start: 2007
  10. MEVACOR [Concomitant]
     Active Substance: LOVASTATIN
     Dates: start: 2007
  11. PROVENTIL [Concomitant]
     Active Substance: ALBUTEROL
     Dates: start: 201410
  12. CALCIUM [Concomitant]
     Active Substance: CALCIUM
     Dates: start: 2015
  13. KLOR CON M [Concomitant]
     Active Substance: POTASSIUM CHLORIDE
     Dates: start: 20181231
  14. MINERALS\VITAMINS [Concomitant]
     Active Substance: MINERALS\VITAMINS
     Dates: start: 20190409
  15. ZYLOPRIM [Concomitant]
     Active Substance: ALLOPURINOL
     Dates: start: 20191105
  16. BROVANA [Concomitant]
     Active Substance: ARFORMOTEROL TARTRATE
     Dates: start: 20201010
  17. DUONEB [Concomitant]
     Active Substance: ALBUTEROL SULFATE\IPRATROPIUM BROMIDE
     Dates: start: 20201010
  18. VITAMINS [Concomitant]
     Active Substance: VITAMINS
     Indication: General physical condition

REACTIONS (4)
  - Death [Fatal]
  - Hypotension [Recovered/Resolved]
  - Astigmatism [Not Recovered/Not Resolved]
  - Conjunctival haemorrhage [Not Recovered/Not Resolved]

NARRATIVE: CASE EVENT DATE: 20210101
